FAERS Safety Report 4705077-1 (Version None)
Quarter: 2005Q3

REPORT INFORMATION
  Report Type: 
  Country: None (occurrence: None)
  Receive Date: 20050701
  Receipt Date: 20050621
  Transmission Date: 20060218
  Serious: Yes (Other)
  Sender: FDA-Public Use
  Company Number: US-SANOFI-SYNTHELABO-A03200501885

PATIENT
  Age: 64 Year
  Sex: Male

DRUGS (8)
  1. PLAVIX [Suspect]
     Indication: STENT PLACEMENT
     Route: 048
     Dates: start: 20040801, end: 20050621
  2. ASPIRIN [Suspect]
     Route: 048
     Dates: end: 20050621
  3. VERAPAMIL [Concomitant]
     Dosage: UNK
     Route: 065
  4. DIOVAN [Concomitant]
     Dosage: UNK
     Route: 065
  5. CLONIDINE [Concomitant]
     Dosage: UNK
     Route: 065
  6. PREVACID [Concomitant]
     Dosage: UNK
     Route: 048
  7. ZOLOFT [Concomitant]
     Dosage: UNK
     Route: 048
  8. LASIX [Concomitant]
     Dosage: UNK
     Route: 048

REACTIONS (2)
  - JOINT SWELLING [None]
  - THROMBOSIS [None]
